FAERS Safety Report 16105494 (Version 3)
Quarter: 2019Q4

REPORT INFORMATION
  Report Type: Report from Study
  Country: CA (occurrence: CA)
  Receive Date: 20190322
  Receipt Date: 20191001
  Transmission Date: 20200122
  Serious: Yes (Other)
  Sender: FDA-Public Use
  Company Number: CA-OTSUKA-2017_009178

PATIENT
  Sex: Female

DRUGS (4)
  1. LENALIDOMIDE [Suspect]
     Active Substance: LENALIDOMIDE
     Dosage: 10 MG, QD (CONTINOUS DOSING)
     Route: 048
     Dates: start: 20170511
  2. MELPHALAN. [Suspect]
     Active Substance: MELPHALAN
     Indication: PRODUCT USED FOR UNKNOWN INDICATION
     Dosage: 233.8 MG, QD
     Route: 042
     Dates: start: 20140322, end: 20140322
  3. LENALIDOMIDE [Suspect]
     Active Substance: LENALIDOMIDE
     Indication: PRODUCT USED FOR UNKNOWN INDICATION
     Dosage: 10 MG, QD (CONTINOUS DOSING)
     Route: 048
     Dates: start: 20140716, end: 20170412
  4. BUSULFAN. [Suspect]
     Active Substance: BUSULFAN
     Indication: PRODUCT USED FOR UNKNOWN INDICATION
     Dosage: 186.8 MG, QD
     Route: 042
     Dates: start: 20140319, end: 20140321

REACTIONS (4)
  - Twin pregnancy [Unknown]
  - Unintended pregnancy [Unknown]
  - Paternal exposure before pregnancy [Unknown]
  - Premature delivery [Recovered/Resolved]

NARRATIVE: CASE EVENT DATE: 201703
